FAERS Safety Report 9740209 (Version 1)
Quarter: 2013Q4

REPORT INFORMATION
  Report Type: Spontaneous
  Country: US (occurrence: US)
  Receive Date: 20131209
  Receipt Date: 20131209
  Transmission Date: 20140711
  Serious: No
  Sender: FDA-Public Use
  Company Number: US-PFIZER INC-2013346631

PATIENT
  Sex: 0

DRUGS (1)
  1. AZITHROMYCIN [Suspect]
     Dosage: 500 MG, UNK

REACTIONS (2)
  - Hypersensitivity [Unknown]
  - Dermatitis allergic [Unknown]
